FAERS Safety Report 6218727-8 (Version None)
Quarter: 2009Q2

REPORT INFORMATION
  Report Type: 
  Country: None (occurrence: None)
  Receive Date: 20090608
  Receipt Date: 20090526
  Transmission Date: 20091009
  Serious: Yes (Hospitalization, Other)
  Sender: FDA-Public Use
  Company Number: US-ELI_LILLY_AND_COMPANY-US200905005065

PATIENT
  Sex: Male

DRUGS (11)
  1. HUMALOG MIX 75/25 [Suspect]
     Dosage: 18 U, 2/D
     Dates: start: 20080901
  2. HUMALOG MIX 75/25 [Suspect]
     Dosage: 18 U, 2/D
  3. HUMALOG MIX 75/25 [Suspect]
  4. ZESTRIL [Concomitant]
     Dosage: 5 MG, UNK
  5. TOPROL-XL [Concomitant]
     Dosage: 25 MG, UNK
  6. PLAVIX [Concomitant]
     Dosage: 75 MG, UNK
  7. ADVAIR HFA [Concomitant]
  8. ALBUTEROL [Concomitant]
  9. ZOCOR [Concomitant]
     Dosage: 80 MG, UNK
  10. SYNTHROID [Concomitant]
     Dosage: 125 UG, UNK
  11. MULTIVITAMIN AND MINERAL [Concomitant]

REACTIONS (13)
  - ASTHMA [None]
  - BLOOD GLUCOSE INCREASED [None]
  - DIZZINESS [None]
  - FALL [None]
  - HYPOACUSIS [None]
  - HYPOTENSION [None]
  - MEMORY IMPAIRMENT [None]
  - MYOCARDIAL INFARCTION [None]
  - NEOPLASM MALIGNANT [None]
  - PNEUMONIA [None]
  - STUBBORNNESS [None]
  - SYNCOPE [None]
  - WOUND INFECTION STAPHYLOCOCCAL [None]
